FAERS Safety Report 8615163-1 (Version None)
Quarter: 2012Q3

REPORT INFORMATION
  Report Type: 
  Country: None (occurrence: None)
  Receive Date: 20120823
  Receipt Date: 20120820
  Transmission Date: 20120928
  Serious: Yes (Other)
  Sender: FDA-Public Use
  Company Number: US-BAYER-2012-079300

PATIENT
  Age: 58 Year
  Sex: Male
  Weight: 95.238 kg

DRUGS (3)
  1. ALEVE (CAPLET) [Suspect]
     Dosage: 2 DF, UNK
     Route: 048
     Dates: end: 20120802
  2. ALEVE (CAPLET) [Suspect]
     Dosage: 2 DF; USED ONLY ONE TIME
     Route: 048
     Dates: start: 20120809, end: 20120809
  3. XANAX [Concomitant]

REACTIONS (13)
  - DYSPNOEA [None]
  - COMA [None]
  - SLUGGISHNESS [None]
  - EYE PRURITUS [None]
  - LIP SWELLING [None]
  - CHEST DISCOMFORT [None]
  - SHOCK [None]
  - HYPERSENSITIVITY [None]
  - BLOOD PRESSURE DECREASED [None]
  - SWELLING FACE [None]
  - PHARYNGEAL OEDEMA [None]
  - PRURITUS GENERALISED [None]
  - PRURITUS [None]
